FAERS Safety Report 25444778 (Version 3)
Quarter: 2025Q3

REPORT INFORMATION
  Report Type: Spontaneous
  Country: EU (occurrence: EU)
  Receive Date: 20250617
  Receipt Date: 20250829
  Transmission Date: 20251021
  Serious: Yes (Death, Hospitalization)
  Sender: MERCK SHARP & DOHME LLC
  Company Number: None

PATIENT
  Age: 81 Year
  Sex: Male

DRUGS (13)
  1. KEYTRUDA [Suspect]
     Active Substance: PEMBROLIZUMAB
     Indication: Lung carcinoma cell type unspecified stage IV
     Dosage: KEYTRUDA 200 MG EVERY 3 WEEKS FOR N BRONCHI ST IV (TOTAL OF 15 CYCLES RECEIVED), STRENGTH 25 MG/ML
     Route: 042
     Dates: start: 20240415, end: 20250303
  2. Berodual DA [Concomitant]
     Indication: Dyspnoea
  3. TRAZODONE HYDROCHLORIDE [Concomitant]
     Active Substance: TRAZODONE HYDROCHLORIDE
     Dosage: 0-0-0-2/3
  4. XGEVA [Concomitant]
     Active Substance: DENOSUMAB
     Dosage: XGEVA INJECTION EVERY 4 WEEKS
  5. Lyrica 25mg Tb [Concomitant]
     Dosage: 0-0-1
  6. Molaxole Btl [Concomitant]
     Indication: Constipation
  7. Maxikalz + Vit D3 Kautbl [Concomitant]
     Dosage: 1-0-0
  8. Entocort Kps 3mg [Concomitant]
     Dosage: 3-0-0
  9. DRONABINOL [Concomitant]
     Active Substance: DRONABINOL
     Indication: Decreased appetite
     Dosage: DRONABINOL DROPS 2-0-2 FOR APPETITE STIMULATION, INCREASED TO 3-3-3 IF WELL TOLERATED
  10. DRONABINOL [Concomitant]
     Active Substance: DRONABINOL
     Indication: Decreased appetite
     Dosage: DRONABINOL DROPS 2-0-2 FOR APPETITE STIMULATION, INCREASED TO 3-3-3 IF WELL TOLERATED
  11. Novalgin Tbl [Concomitant]
     Indication: Pain
  12. Gelorevoice lozenges [Concomitant]
  13. Metogastron Tr [Concomitant]
     Indication: Nausea

REACTIONS (3)
  - General physical health deterioration [Unknown]
  - Pneumonitis [Fatal]
  - Diarrhoea [Unknown]

NARRATIVE: CASE EVENT DATE: 20250426
